FAERS Safety Report 6791293-4 (Version None)
Quarter: 2010Q2

REPORT INFORMATION
  Report Type: 
  Country: None (occurrence: None)
  Receive Date: 20100624
  Receipt Date: 20100618
  Transmission Date: 20101027
  Serious: Yes (Other)
  Sender: FDA-Public Use
  Company Number: CHPA2010SE10308

PATIENT
  Sex: Male

DRUGS (1)
  1. OTRIVIN MENTHOL (NCH) [Suspect]
     Indication: NASAL CONGESTION
     Dosage: UNK, QD
     Route: 045

REACTIONS (1)
  - DRUG DEPENDENCE [None]
